FAERS Safety Report 7169773-1 (Version None)
Quarter: 2010Q4

REPORT INFORMATION
  Report Type: 
  Country: None (occurrence: None)
  Receive Date: 20101217
  Receipt Date: 20100524
  Transmission Date: 20110411
  Serious: No
  Sender: FDA-Public Use
  Company Number: A0861044A

PATIENT
  Sex: Female

DRUGS (1)
  1. SORIATANE [Suspect]
     Indication: PSORIASIS
     Dosage: 25MG PER DAY
     Route: 048
     Dates: start: 20100501

REACTIONS (2)
  - HYPERSENSITIVITY [None]
  - RASH GENERALISED [None]
